FAERS Safety Report 8674558 (Version 3)
Quarter: 2012Q4

REPORT INFORMATION
  Report Type: 
  Country: US (occurrence: US)
  Receive Date: 20120720
  Receipt Date: 20120904
  Transmission Date: 20130627
  Serious: Yes (Other)
  Sender: FDA-Public Use
  Company Number: US-BAYER-2012-072241

PATIENT
  Age: 32 Year
  Sex: Female
  Weight: 88.44 kg

DRUGS (1)
  1. MIRENA [Suspect]
     Indication: CONTRACEPTION
     Dosage: 20 ?g, CONT
     Route: 015
     Dates: start: 20120502, end: 20120706

REACTIONS (11)
  - Uterine perforation [Recovered/Resolved]
  - Device dislocation [Recovered/Resolved]
  - Abdominal pain [Recovered/Resolved]
  - Abdominal pain [Recovered/Resolved]
  - Procedural pain [None]
  - Presyncope [Recovered/Resolved]
  - Fatigue [None]
  - Device breakage [None]
  - Pallor [None]
  - Dizziness [None]
  - Device dislocation [Recovered/Resolved]
